FAERS Safety Report 13517242 (Version 1)
Quarter: 2017Q2

REPORT INFORMATION
  Report Type: Spontaneous
  Country: US (occurrence: US)
  Receive Date: 20170504
  Receipt Date: 20170504
  Transmission Date: 20170830
  Serious: Yes (Life-Threatening, Hospitalization)
  Sender: FDA-Public Use
  Company Number: None

PATIENT
  Age: 64 Year
  Sex: Male
  Weight: 56.6 kg

DRUGS (5)
  1. ZOFRAN [Concomitant]
     Active Substance: ONDANSETRON HYDROCHLORIDE
  2. DEXAMETHASONE. [Concomitant]
     Active Substance: DEXAMETHASONE
  3. PARAPLATIN [Concomitant]
     Active Substance: CARBOPLATIN
  4. ERBITUX [Suspect]
     Active Substance: CETUXIMAB
     Indication: SQUAMOUS CELL CARCINOMA OF HEAD AND NECK
     Dosage: ?          OTHER FREQUENCY:Q3 WEEKS X 6 CYCLE;?
     Route: 042
     Dates: start: 20170424, end: 20170424
  5. BENADRYL [Concomitant]
     Active Substance: DIPHENHYDRAMINE HYDROCHLORIDE

REACTIONS (7)
  - Pupil fixed [None]
  - Hypotension [None]
  - Pulse abnormal [None]
  - Infusion related reaction [None]
  - Infusion site pain [None]
  - Loss of consciousness [None]
  - Tobacco user [None]

NARRATIVE: CASE EVENT DATE: 20170424
